FAERS Safety Report 22225127 (Version 1)
Quarter: 2023Q2

REPORT INFORMATION
  Report Type: Spontaneous
  Country: US (occurrence: None)
  Receive Date: 20230417
  Receipt Date: 20230417
  Transmission Date: 20230722
  Serious: Yes (Death)
  Sender: FDA-Public Use
  Company Number: None

PATIENT
  Age: 81 Year
  Sex: Female
  Weight: 48.99 kg

DRUGS (15)
  1. KISQALI [Suspect]
     Active Substance: RIBOCICLIB
     Indication: Bone cancer
     Dosage: FREQUENCY : DAILY;?
     Route: 048
     Dates: start: 202303, end: 20230406
  2. BENADRYL [Concomitant]
     Active Substance: DIPHENHYDRAMINE HYDROCHLORIDE
  3. VITAMIN B12 [Concomitant]
     Active Substance: CYANOCOBALAMIN
  4. CYCLOBENZAPRINE [Concomitant]
     Active Substance: CYCLOBENZAPRINE
  5. FIBER LAXATIVE [Concomitant]
  6. GARLIC [Concomitant]
     Active Substance: GARLIC
  7. LOSARTAN [Concomitant]
     Active Substance: LOSARTAN
  8. METOPROLOL [Concomitant]
     Active Substance: METOPROLOL
  9. VITAMINS [Concomitant]
     Active Substance: VITAMINS
  10. OXYCODONE [Concomitant]
     Active Substance: OXYCODONE
  11. SYMBICORT [Concomitant]
     Active Substance: BUDESONIDE\FORMOTEROL FUMARATE DIHYDRATE
  12. TRELEGY ELLIPTA [Concomitant]
     Active Substance: FLUTICASONE FUROATE\UMECLIDINIUM BROMIDE\VILANTEROL TRIFENATATE
  13. VENTOLIN [Concomitant]
     Active Substance: ALBUTEROL SULFATE
  14. VITAMIN C [Concomitant]
     Active Substance: ASCORBIC ACID
  15. VITAMIN D3 [Concomitant]
     Active Substance: CHOLECALCIFEROL

REACTIONS (1)
  - Death [None]

NARRATIVE: CASE EVENT DATE: 20230406
